FAERS Safety Report 23189010 (Version 2)
Quarter: 2024Q1

REPORT INFORMATION
  Report Type: Spontaneous
  Country: US (occurrence: US)
  Receive Date: 20231115
  Receipt Date: 20240117
  Transmission Date: 20240410
  Serious: Yes (Other)
  Sender: FDA-Public Use
  Company Number: US-ABBVIE-5491297

PATIENT
  Age: 54 Year
  Sex: Female

DRUGS (22)
  1. SKYRIZI [Suspect]
     Active Substance: RISANKIZUMAB-RZAA
     Indication: Psoriasis
     Dosage: FREQUENCY TEXT: EVERY 12 WEEKS
     Route: 058
     Dates: start: 20230509
  2. MAGNESIUM [Concomitant]
     Active Substance: MAGNESIUM
     Indication: Product used for unknown indication
     Dosage: MAGNESIUM 400 MG (AS MAGNESIUM OXIDE) CAPSULE
  3. LOSARTAN [Concomitant]
     Active Substance: LOSARTAN
     Indication: Product used for unknown indication
     Dosage: LOSARTAN 100 MG TABLET
  4. ATORVASTATIN [Concomitant]
     Active Substance: ATORVASTATIN
     Indication: Product used for unknown indication
     Dosage: ATORVASTATIN 10 MG TABLET
  5. FISH OIL [Concomitant]
     Active Substance: FISH OIL
     Indication: Product used for unknown indication
     Dosage: FISH OIL 1,000 MG (120 MG-180 MG) CAPSULE
  6. VITAMIN B COMPLEX [Concomitant]
     Active Substance: CYANOCOBALAMIN\DEXPANTHENOL\NIACINAMIDE\PYRIDOXINE HYDROCHLORIDE\RIBOFLAVIN 5^-PHOSPHATE SODIUM\THIA
     Indication: Vitamin supplementation
     Dosage: VITAMIN B COMPLEX TABLET
  7. VITAMIN C [Concomitant]
     Active Substance: ASCORBIC ACID
     Indication: Vitamin supplementation
     Dosage: VITAMIN C 100 MG TABLET
  8. TRULICITY [Concomitant]
     Active Substance: DULAGLUTIDE
     Indication: Product used for unknown indication
     Dosage: TRULICITY 3 MG/0.5 ML SUBCUTANEOUS PEN INJECTOR
  9. TRULICITY [Concomitant]
     Active Substance: DULAGLUTIDE
     Indication: Product used for unknown indication
     Dosage: TRULICITY 0.75 MG/0.5 ML SUBCUTANEOUS PEN INJECTOR
  10. FLUTICASONE FUROATE [Concomitant]
     Active Substance: FLUTICASONE FUROATE
     Indication: Product used for unknown indication
     Dosage: FLUTICASONE FUROATE 50 MCG/ACTUATION BLISTER POWDER FOR INHALATION
  11. NYSTATIN [Concomitant]
     Active Substance: NYSTATIN
     Indication: Product used for unknown indication
     Dosage: NYSTATIN 100,000 UNIT/GRAM TOPICAL POWDER
     Dates: start: 202304
  12. ZINC ACETATE [Concomitant]
     Active Substance: ZINC ACETATE
     Indication: Product used for unknown indication
     Dosage: ZINC ACETATE 50 MG (ZINC) CAPSULE
  13. ALPRAZOLAMS [Concomitant]
     Indication: Product used for unknown indication
     Dosage: ALPRAZOLAM 0.5 MG TABLET
  14. METOPROLOL TARTRATE [Concomitant]
     Active Substance: METOPROLOL TARTRATE
     Indication: Product used for unknown indication
     Dosage: METOPROLOL TARTRATE 50 MG TABLET
  15. POTASSIUM GLUCONATE [Concomitant]
     Active Substance: POTASSIUM GLUCONATE
     Indication: Product used for unknown indication
     Dosage: POTASSIUM GLUCONATE 595 MG (99 MG) TABLET
  16. CLONIDINE HYDROCHLORIDE [Concomitant]
     Active Substance: CLONIDINE HYDROCHLORIDE
     Indication: Product used for unknown indication
     Dosage: CLONIDINE HCL 0.2 MG TABLET
  17. OMEPRAZOLE [Concomitant]
     Active Substance: OMEPRAZOLE
     Indication: Product used for unknown indication
     Dosage: OMEPRAZOLE 10 MG CAPSULE,DELAYED RELEASE
  18. VITAMIN D3 [Concomitant]
     Active Substance: CHOLECALCIFEROL
     Indication: Vitamin supplementation
     Dosage: VITAMIN D3 50 MCG (2,000 UNIT) CAPSULE
  19. CLOBETASOL [Concomitant]
     Active Substance: CLOBETASOL
     Indication: Product used for unknown indication
     Dosage: CLOBETASOL 0.05 % TOPICAL CREAM/
     Dates: start: 202304
  20. VTAMA [Concomitant]
     Active Substance: TAPINAROF
     Indication: Product used for unknown indication
     Dosage: VTAMA 1 % TOPICAL CREAM
     Dates: start: 202304
  21. HYDROCHLOROTHIAZIDE [Concomitant]
     Active Substance: HYDROCHLOROTHIAZIDE
     Indication: Product used for unknown indication
     Dosage: HYDROCHLOROTHIAZIDE 25 MG TABLET
  22. ALLERCLEAR D [Concomitant]
     Indication: Product used for unknown indication
     Dosage: ALLERCLEAR D-24HR 10 MG-240 MG TABLET,EXTENDED RELEASE

REACTIONS (1)
  - Renal cell carcinoma stage I [Recovered/Resolved]

NARRATIVE: CASE EVENT DATE: 20230801
